FAERS Safety Report 7951679-9 (Version None)
Quarter: 2011Q4

REPORT INFORMATION
  Report Type: 
  Country: None (occurrence: None)
  Receive Date: 20111201
  Receipt Date: 20111129
  Transmission Date: 20120403
  Serious: Yes (Life-Threatening)
  Sender: FDA-Public Use
  Company Number: JP-SANOFI-AVENTIS-2011SA077450

PATIENT
  Age: 77 Year
  Sex: Female
  Weight: 66 kg

DRUGS (23)
  1. OXALIPLATIN [Suspect]
     Indication: LARGE INTESTINE CARCINOMA
     Route: 041
     Dates: end: 20110602
  2. AVASTIN [Concomitant]
     Indication: LARGE INTESTINE CARCINOMA
     Route: 041
     Dates: start: 20110602
  3. FLUTICASONE PROPIONATE [Concomitant]
     Dosage: ROUTE: IH
  4. CALBLOCK [Concomitant]
     Route: 048
  5. CEFAZOLIN SODIUM [Concomitant]
     Route: 048
  6. ASPIRIN [Concomitant]
     Route: 048
  7. DEPAS [Concomitant]
     Route: 048
  8. POSTERISAN [Concomitant]
     Route: 048
  9. LEVOLEUCOVORIN CALCIUM [Concomitant]
     Indication: LARGE INTESTINE CARCINOMA
     Route: 041
     Dates: start: 20110603
  10. EMEND [Concomitant]
     Indication: PROPHYLAXIS
     Dosage: DOSE:125-80
     Route: 048
  11. AMBROXOL HYDROCHLORIDE [Concomitant]
     Route: 048
  12. ALDECIN-AQ- [Concomitant]
     Dosage: ROUTE: IN
  13. HALCION [Concomitant]
     Route: 048
  14. PRIMPERAN TAB [Concomitant]
     Indication: PREMEDICATION
     Route: 041
     Dates: start: 20110602
  15. OLMESARTAN MEDOXOMIL [Concomitant]
     Route: 048
  16. CODEINE PHOSPHATE [Concomitant]
     Route: 048
  17. MAGNESIUM OXIDE [Concomitant]
     Route: 048
  18. ZYRTEC [Concomitant]
     Route: 048
  19. NITROGLYCERIN [Concomitant]
     Route: 048
  20. DEXAMETHASONE [Concomitant]
     Route: 048
  21. FLUOROURACIL [Concomitant]
     Indication: LARGE INTESTINE CARCINOMA
     Route: 041
     Dates: start: 20110603
  22. MERISLON [Concomitant]
     Route: 048
  23. MOTILIUM [Concomitant]
     Dosage: ROUTE: PR

REACTIONS (1)
  - HYPONATRAEMIA [None]
